FAERS Safety Report 24059344 (Version 1)
Quarter: 2024Q3

REPORT INFORMATION
  Report Type: Spontaneous
  Country: US (occurrence: US)
  Receive Date: 20240708
  Receipt Date: 20240708
  Transmission Date: 20241016
  Serious: Yes (Hospitalization, Other)
  Sender: DR REDDYS
  Company Number: US-DRL-USA-LIT/USA/24/0009465

PATIENT
  Age: 46 Year
  Sex: Male

DRUGS (7)
  1. ATORVASTATIN [Suspect]
     Active Substance: ATORVASTATIN
     Indication: Hypertriglyceridaemia
     Dosage: 40 MG PO DAILY
     Route: 048
  2. FENOFIBRATE [Suspect]
     Active Substance: FENOFIBRATE
     Indication: Hypertriglyceridaemia
     Dosage: 45 MG PO DAILY
     Route: 048
  3. METFORMIN [Suspect]
     Active Substance: METFORMIN HYDROCHLORIDE
     Indication: Product used for unknown indication
     Dosage: 1,000 MG PO TWICE A DAY,
     Route: 048
  4. GLIPIZIDE [Suspect]
     Active Substance: GLIPIZIDE
     Indication: Hypertriglyceridaemia
     Dosage: 5 MG PO DAILY
     Route: 048
  5. LEVEMIR [Suspect]
     Active Substance: INSULIN DETEMIR
     Indication: Hypertriglyceridaemia
     Dosage: 60 UNITS SQ TWICE A DAY
     Route: 048
  6. DULAGLUTIDE [Suspect]
     Active Substance: DULAGLUTIDE
     Indication: Hypertriglyceridaemia
     Dosage: 0.75 MG SQ WEEKLY
     Route: 048
  7. INSULIN NOS [Concomitant]
     Active Substance: INSULIN NOS
     Indication: Hypertriglyceridaemia
     Route: 048

REACTIONS (3)
  - Pancreatitis acute [Unknown]
  - Diabetic ketoacidosis [Unknown]
  - Drug ineffective [Unknown]
